FAERS Safety Report 16460014 (Version 1)
Quarter: 2019Q2

REPORT INFORMATION
  Report Type: Spontaneous
  Country: BE (occurrence: BE)
  Receive Date: 20190620
  Receipt Date: 20190620
  Transmission Date: 20190711
  Serious: Yes (Life-Threatening, Other)
  Sender: FDA-Public Use
  Company Number: BE-009507513-1906BEL006554

PATIENT
  Age: 20 Year
  Sex: Female

DRUGS (2)
  1. ROCURONIUM BROMIDE. [Concomitant]
     Active Substance: ROCURONIUM BROMIDE
     Dosage: UNK
  2. BRIDION [Suspect]
     Active Substance: SUGAMMADEX
     Dosage: 4 MILLIGRAM/KILOGRAM

REACTIONS (4)
  - Loss of consciousness [Unknown]
  - Recurrence of neuromuscular blockade [Unknown]
  - Laryngeal haemorrhage [Unknown]
  - Laryngospasm [Unknown]
